FAERS Safety Report 18319924 (Version 4)
Quarter: 2021Q3

REPORT INFORMATION
  Report Type: Spontaneous
  Country: US (occurrence: US)
  Receive Date: 20200928
  Receipt Date: 20210922
  Transmission Date: 20211014
  Serious: Yes (Hospitalization)
  Sender: FDA-Public Use
  Company Number: US-AMRYT PHARMACEUTICALS DAC-AEGR004977

PATIENT
  Age: 33 Year
  Sex: Female
  Weight: 99.32 kg

DRUGS (2)
  1. BACTERIOSTATIC WATER [Concomitant]
     Active Substance: WATER
     Indication: PRODUCT USED FOR UNKNOWN INDICATION
  2. MYALEPT [Suspect]
     Active Substance: METRELEPTIN
     Indication: LIPODYSTROPHY ACQUIRED
     Dosage: 5 MG, QD
     Route: 058

REACTIONS (8)
  - Unevaluable event [Unknown]
  - Product outer packaging issue [Unknown]
  - Skin laceration [Unknown]
  - Poor quality product administered [Unknown]
  - Hospitalisation [Unknown]
  - Weight abnormal [Unknown]
  - Product container issue [Unknown]
  - Product storage error [Unknown]

NARRATIVE: CASE EVENT DATE: 202012
